FAERS Safety Report 15525313 (Version 3)
Quarter: 2018Q4

REPORT INFORMATION
  Report Type: Report from Study
  Country: US (occurrence: US)
  Receive Date: 20181019
  Receipt Date: 20181112
  Transmission Date: 20190205
  Serious: Yes (Other)
  Sender: FDA-Public Use
  Company Number: US-VERTEX PHARMACEUTICALS-2018-007481

PATIENT
  Age: 17 Year
  Sex: Female
  Weight: 61 kg

DRUGS (21)
  1. VX-445 [Suspect]
     Active Substance: INVESTIGATIONAL PRODUCT
     Indication: CYSTIC FIBROSIS
     Dosage: 100 MG, QD
     Route: 048
     Dates: start: 20180830
  2. VX-661/VX-770 [Suspect]
     Active Substance: IVACAFTOR\TEZACAFTOR
     Indication: CYSTIC FIBROSIS
     Dosage: 50 MG TEZ/75 MG IVA QD AND 150 MG IVA QD
     Route: 048
     Dates: start: 20180830
  3. FORMOTEROL W/MOMETASONE [Concomitant]
     Active Substance: FORMOTEROL\MOMETASONE
     Indication: ASTHMA
  4. CAYSTON [Concomitant]
     Active Substance: AZTREONAM
     Indication: CYSTIC FIBROSIS LUNG
     Dosage: 75 MG, TID
     Route: 055
     Dates: start: 20180804, end: 20180831
  5. TIOTROPIUM BROMIDE [Concomitant]
     Active Substance: TIOTROPIUM BROMIDE
     Indication: CYSTIC FIBROSIS LUNG
     Dosage: 1.25 MICROGRAM, QD
     Route: 055
     Dates: start: 20070701
  6. JOLESSA [Concomitant]
     Active Substance: ETHINYL ESTRADIOL\LEVONORGESTREL
     Dosage: 0.15 MG, QD
     Route: 048
     Dates: start: 20161101
  7. SODIUM CHLORIDE. [Concomitant]
     Active Substance: SODIUM CHLORIDE
     Indication: CYSTIC FIBROSIS LUNG
     Dosage: 4 MILLILITER, BID
     Route: 055
     Dates: start: 20070701
  8. MONTELUKAST [Concomitant]
     Active Substance: MONTELUKAST SODIUM
     Indication: CYSTIC FIBROSIS LUNG
     Dosage: 5 MG, QD
     Route: 048
     Dates: start: 20170701
  9. CREON [Concomitant]
     Active Substance: PANCRELIPASE AMYLASE\PANCRELIPASE LIPASE\PANCRELIPASE PROTEASE
     Indication: PANCREATIC FAILURE
     Dosage: 72000 UT, BID
     Route: 048
     Dates: start: 20070701
  10. ESCITALOPRAM [Concomitant]
     Active Substance: ESCITALOPRAM OXALATE
     Indication: DEPRESSION
     Dosage: 10 MG, QD
     Dates: start: 20070701
  11. CETRIZINE [Concomitant]
     Active Substance: CETIRIZINE HYDROCHLORIDE
     Dosage: 10 MG, QD
     Route: 048
     Dates: start: 20070701
  12. COLISTIN [Concomitant]
     Active Substance: COLISTIN
     Dosage: 75 MG, TID
     Route: 055
     Dates: start: 20180930
  13. XOPENEX [Concomitant]
     Active Substance: LEVALBUTEROL HYDROCHLORIDE
     Indication: ASTHMA
     Dosage: 90 MICROGRAM, PRN, MDI
     Route: 055
     Dates: start: 20070701
  14. FORMOTEROL W/MOMETASONE [Concomitant]
     Active Substance: FORMOTEROL\MOMETASONE
     Indication: CYSTIC FIBROSIS LUNG
     Dosage: 5 MICROGRAM, BID
     Route: 055
     Dates: start: 20070701
  15. FLUTICASONE. [Concomitant]
     Active Substance: FLUTICASONE
     Indication: SINUS DISORDER
     Dosage: 50 MICROGRAM, BID
     Route: 045
     Dates: start: 20070701
  16. OMEPRAZOLE. [Concomitant]
     Active Substance: OMEPRAZOLE
     Indication: GASTROOESOPHAGEAL REFLUX DISEASE
     Dosage: 40 MG, QD
     Route: 048
     Dates: start: 20070701
  17. COLISTIN [Concomitant]
     Active Substance: COLISTIN
     Indication: CYSTIC FIBROSIS LUNG
     Dosage: 150 MG, BID
     Route: 055
     Dates: start: 20180901, end: 20180929
  18. TWOCAL HN [Concomitant]
     Active Substance: DIETARY SUPPLEMENT
     Dosage: 2 CANS VIA G TUBE, QD
     Dates: start: 20070701
  19. XOPENEX [Concomitant]
     Active Substance: LEVALBUTEROL HYDROCHLORIDE
     Indication: CYSTIC FIBROSIS LUNG
     Dosage: 3 MILLILITER, TID
     Route: 055
     Dates: start: 20070701
  20. DORNASE ALFA. [Concomitant]
     Active Substance: DORNASE ALFA
     Indication: CYSTIC FIBROSIS LUNG
     Dosage: 2.5 MILLILITER, QD
     Route: 055
     Dates: start: 20170701
  21. URSODIOL. [Concomitant]
     Active Substance: URSODIOL
     Indication: CYSTIC FIBROSIS HEPATIC DISEASE
     Dosage: 300 MG, QD
     Route: 048
     Dates: start: 20180701

REACTIONS (1)
  - Rash [Recovered/Resolved]

NARRATIVE: CASE EVENT DATE: 20180921
